FAERS Safety Report 23184975 (Version 7)
Quarter: 2024Q2

REPORT INFORMATION
  Report Type: Report from Study
  Country: NL (occurrence: NL)
  Receive Date: 20231115
  Receipt Date: 20240617
  Transmission Date: 20240716
  Serious: Yes (Hospitalization, Other)
  Sender: FDA-Public Use
  Company Number: NL-ABBVIE-5458007

PATIENT
  Age: 81 Year
  Sex: Female

DRUGS (13)
  1. CARBIDOPA\LEVODOPA [Suspect]
     Active Substance: CARBIDOPA\LEVODOPA
     Indication: Parkinson^s disease
     Dosage: MD:6.0ML; CD:1.8ML/H; ED:1.0ML?DURATION TEXT: REMAINS AT 16 HOURS?FREQUENCY TEXT: 1 AT NIGHT
     Route: 050
     Dates: start: 20231010, end: 20231010
  2. CARBIDOPA\LEVODOPA [Suspect]
     Active Substance: CARBIDOPA\LEVODOPA
     Dosage: MD:6.5ML; CD:2.7ML/H; ED:2.0ML ?REMAINS AT 16 HOURS
     Route: 050
     Dates: start: 20240123, end: 20240205
  3. CARBIDOPA\LEVODOPA [Suspect]
     Active Substance: CARBIDOPA\LEVODOPA
     Dosage: MD:6.5ML; CD:2.9ML/H; ED:2.0ML?DURATION TEXT: REMAINS AT 16 HOURS
     Route: 050
     Dates: start: 20240228
  4. CARBIDOPA\LEVODOPA [Suspect]
     Active Substance: CARBIDOPA\LEVODOPA
     Dosage: MD:8.0ML; CD:2.4ML/H; ED:2.0ML?DURATION TEXT: REMAINS AT 16 HOURS
     Route: 050
     Dates: start: 20231107, end: 20231112
  5. CARBIDOPA\LEVODOPA [Suspect]
     Active Substance: CARBIDOPA\LEVODOPA
     Dosage: MD:7.0ML; CD:2.4ML/H; ED:2.0ML
     Route: 050
     Dates: start: 20231112, end: 20231121
  6. CARBIDOPA\LEVODOPA [Suspect]
     Active Substance: CARBIDOPA\LEVODOPA
     Route: 050
  7. CARBIDOPA\LEVODOPA [Suspect]
     Active Substance: CARBIDOPA\LEVODOPA
     Dosage: MD:7.0ML; CD:2.1ML/H; ED:2.5ML;?DURATION TEXT: REMAINS AT 16 HOURS
     Route: 050
     Dates: start: 20231011, end: 20231011
  8. CARBIDOPA\LEVODOPA [Suspect]
     Active Substance: CARBIDOPA\LEVODOPA
     Dosage: MD:7.0ML; CD:2.5ML/H; ED:2.0M?DURATION TEXT: REMAINS AT 16 HOURS
     Route: 050
     Dates: start: 20231014, end: 20231014
  9. CARBIDOPA\LEVODOPA [Suspect]
     Active Substance: CARBIDOPA\LEVODOPA
     Dosage: MD:8.0ML; CD:2.6ML/H; ED:2.0ML?REMAINS AT 16 HOURS
     Route: 050
     Dates: start: 20231031, end: 20231107
  10. CARBIDOPA\LEVODOPA [Suspect]
     Active Substance: CARBIDOPA\LEVODOPA
     Dosage: MD:8.0ML; CD:2.6ML/H; ED:2.0ML?REMAINS AT 16 HOURS
     Route: 050
     Dates: start: 20231026, end: 20231031
  11. CARBIDOPA\LEVODOPA [Suspect]
     Active Substance: CARBIDOPA\LEVODOPA
     Dosage: MD:6.5ML; CD:2.4ML/H; ED:2.0ML REMAINS AT 16 HOURS
     Route: 050
     Dates: start: 20231121, end: 20231222
  12. CARBIDOPA\LEVODOPA [Suspect]
     Active Substance: CARBIDOPA\LEVODOPA
     Dosage: MD:6.5ML; CD:2.7ML/H; ED:2.0ML?REMAINS AT 16 HOURS
     Route: 050
     Dates: start: 20231222, end: 20240123
  13. CARBIDOPA\LEVODOPA [Suspect]
     Active Substance: CARBIDOPA\LEVODOPA
     Dosage: MD:6.5ML; CD:2.7ML/H; ED:2.0ML
     Route: 050
     Dates: start: 20240205, end: 20240228

REACTIONS (42)
  - Rehabilitation therapy [Not Recovered/Not Resolved]
  - Fall [Recovered/Resolved]
  - Dyskinesia [Not Recovered/Not Resolved]
  - Movement disorder [Recovering/Resolving]
  - Balance disorder [Not Recovered/Not Resolved]
  - Mobility decreased [Recovering/Resolving]
  - Muscle rigidity [Not Recovered/Not Resolved]
  - Device dislocation [Recovered/Resolved]
  - Gait disturbance [Not Recovered/Not Resolved]
  - Cystitis [Recovering/Resolving]
  - Appetite disorder [Not Recovered/Not Resolved]
  - Feeling abnormal [Not Recovered/Not Resolved]
  - Freezing phenomenon [Not Recovered/Not Resolved]
  - Unevaluable event [Recovering/Resolving]
  - Anxiety [Not Recovered/Not Resolved]
  - Apathy [Not Recovered/Not Resolved]
  - Peripheral coldness [Not Recovered/Not Resolved]
  - Limb discomfort [Not Recovered/Not Resolved]
  - Injury [Not Recovered/Not Resolved]
  - Thinking abnormal [Not Recovered/Not Resolved]
  - Insomnia [Not Recovered/Not Resolved]
  - Mobility decreased [Not Recovered/Not Resolved]
  - Tension [Not Recovered/Not Resolved]
  - Dyschezia [Not Recovered/Not Resolved]
  - Mood swings [Recovering/Resolving]
  - Movement disorder [Not Recovered/Not Resolved]
  - Bowel movement irregularity [Not Recovered/Not Resolved]
  - Nocturia [Not Recovered/Not Resolved]
  - Polyneuropathy [Not Recovered/Not Resolved]
  - Muscular weakness [Not Recovered/Not Resolved]
  - Walking aid user [Not Recovered/Not Resolved]
  - Supportive care [Not Recovered/Not Resolved]
  - Tremor [Not Recovered/Not Resolved]
  - Abnormal dreams [Recovered/Resolved]
  - Faeces hard [Not Recovered/Not Resolved]
  - Musculoskeletal stiffness [Not Recovered/Not Resolved]
  - Depressed mood [Recovering/Resolving]
  - Device connection issue [Unknown]
  - Balance disorder [Not Recovered/Not Resolved]
  - Freezing phenomenon [Not Recovered/Not Resolved]
  - On and off phenomenon [Not Recovered/Not Resolved]
  - Hospitalisation [Not Recovered/Not Resolved]

NARRATIVE: CASE EVENT DATE: 20230101
